FAERS Safety Report 7158603-X (Version None)
Quarter: 2010Q4

REPORT INFORMATION
  Report Type: 
  Country: None (occurrence: None)
  Receive Date: 20101214
  Receipt Date: 20100614
  Transmission Date: 20110411
  Serious: No
  Sender: FDA-Public Use
  Company Number: US-ASTRAZENECA-2010SE27552

PATIENT
  Age: 59 Year
  Sex: Female
  Weight: 62.6 kg

DRUGS (4)
  1. CRESTOR [Suspect]
     Route: 048
  2. COQ10 [Concomitant]
  3. VIT D [Concomitant]
  4. MULTI-VITAMIN [Concomitant]

REACTIONS (1)
  - PHOTOSENSITIVITY REACTION [None]
